FAERS Safety Report 6235120-2 (Version None)
Quarter: 2009Q2

REPORT INFORMATION
  Report Type: 
  Country: None (occurrence: None)
  Receive Date: 20090618
  Receipt Date: 20090616
  Transmission Date: 20091009
  Serious: Yes (Death)
  Sender: FDA-Public Use
  Company Number: JP-ELI_LILLY_AND_COMPANY-JP200906003823

PATIENT
  Age: 62 Year
  Sex: Male

DRUGS (2)
  1. GEMZAR [Suspect]
     Indication: PANCREATIC CARCINOMA STAGE III
     Dosage: 1000 MG/M2, OTHER
     Route: 042
  2. TS 1 /JPN/ [Concomitant]
     Indication: PANCREATIC CARCINOMA STAGE III
     Route: 048
     Dates: end: 20090501

REACTIONS (1)
  - INTERSTITIAL LUNG DISEASE [None]
